FAERS Safety Report 6857692-7 (Version None)
Quarter: 2010Q3

REPORT INFORMATION
  Report Type: 
  Country: None (occurrence: None)
  Receive Date: 20100719
  Receipt Date: 20080128
  Transmission Date: 20110219
  Serious: No
  Sender: FDA-Public Use
  Company Number: US-PFIZER INC-2008009874

PATIENT
  Age: 65 Year
  Sex: Female

DRUGS (2)
  1. CHANTIX [Suspect]
  2. PAXIL [Suspect]

REACTIONS (2)
  - DRUG INEFFECTIVE [None]
  - MENTAL DISORDER [None]
